FAERS Safety Report 8984677 (Version 2)
Quarter: 2013Q1

REPORT INFORMATION
  Report Type: Spontaneous
  Country: NL (occurrence: NL)
  Receive Date: 20121226
  Receipt Date: 20130111
  Transmission Date: 20140127
  Serious: Yes (Death, Hospitalization)
  Sender: FDA-Public Use
  Company Number: PHHY2012NL119413

PATIENT
  Sex: Male

DRUGS (4)
  1. ZOMETA [Suspect]
     Indication: PROSTATE CANCER METASTATIC
     Dosage: 4 MG/100ML, ONCE IN 21 DAYS
     Route: 042
  2. ZOMETA [Suspect]
     Dosage: 4 MG/100ML, ONCE IN 21 DAYS
     Route: 042
     Dates: start: 20120330
  3. ZOMETA [Suspect]
     Dosage: 4 MG/100ML, ONCE IN 21 DAYS
     Route: 042
     Dates: start: 20121205
  4. ZOMETA [Suspect]
     Dosage: 4 MG/100ML, ONCE IN 21 DAYS
     Route: 042
     Dates: start: 20121224

REACTIONS (2)
  - Death [Fatal]
  - Pulmonary embolism [Recovering/Resolving]
